FAERS Safety Report 5767253-9 (Version None)
Quarter: 2008Q2

REPORT INFORMATION
  Report Type: 
  Country: None (occurrence: None)
  Receive Date: 20080611
  Receipt Date: 20080611
  Transmission Date: 20081010
  Serious: Yes (Other)
  Sender: FDA-Public Use
  Company Number: None

PATIENT
  Age: 30 Year
  Sex: Female
  Weight: 86.1834 kg

DRUGS (2)
  1. CYMBALTA [Suspect]
     Indication: DEPRESSION
     Dosage: 60MG DAILY PO
     Route: 048
     Dates: start: 20070301, end: 20080601
  2. CYMBALTA [Suspect]
     Indication: MOOD SWINGS
     Dosage: 60MG DAILY PO
     Route: 048
     Dates: start: 20070301, end: 20080601

REACTIONS (13)
  - ABDOMINAL DISTENSION [None]
  - ASTHENIA [None]
  - BALANCE DISORDER [None]
  - DIARRHOEA [None]
  - DISTURBANCE IN ATTENTION [None]
  - DRUG WITHDRAWAL SYNDROME [None]
  - FEELING ABNORMAL [None]
  - FLATULENCE [None]
  - GASTRIC DISORDER [None]
  - NERVOUS SYSTEM DISORDER [None]
  - PHARMACEUTICAL PRODUCT COMPLAINT [None]
  - SUICIDAL IDEATION [None]
  - TREMOR [None]
